FAERS Safety Report 6057553-X (Version None)
Quarter: 2009Q1

REPORT INFORMATION
  Report Type: 
  Country: None (occurrence: None)
  Receive Date: 20090127
  Receipt Date: 20090127
  Transmission Date: 20090719
  Serious: Yes (Other)
  Sender: FDA-Public Use
  Company Number: None

PATIENT
  Age: 38 Year
  Sex: Female
  Weight: 74.8435 kg

DRUGS (1)
  1. VYVANSE [Suspect]
     Indication: ATTENTION DEFICIT/HYPERACTIVITY DISORDER
     Dosage: 70 MG 2 TIMES PER DAY PO
     Route: 048
     Dates: start: 20080701, end: 20080901

REACTIONS (3)
  - CONDITION AGGRAVATED [None]
  - OBSESSIVE-COMPULSIVE DISORDER [None]
  - WEIGHT INCREASED [None]
